FAERS Safety Report 8408612-5 (Version None)
Quarter: 2012Q2

REPORT INFORMATION
  Report Type: 
  Country: None (occurrence: None)
  Receive Date: 20120604
  Receipt Date: 20120202
  Transmission Date: 20120825
  Serious: No
  Sender: FDA-Public Use
  Company Number: US-NOVEN-12US004035

PATIENT
  Sex: Male
  Weight: 56.689 kg

DRUGS (2)
  1. MELATONIN [Concomitant]
     Indication: INSOMNIA
     Dosage: 5 MG, UNK
  2. DAYTRANA [Suspect]
     Indication: ATTENTION DEFICIT/HYPERACTIVITY DISORDER
     Dosage: UNK
     Route: 062
     Dates: start: 20060101

REACTIONS (3)
  - INCORRECT STORAGE OF DRUG [None]
  - NO ADVERSE EVENT [None]
  - OFF LABEL USE [None]
